FAERS Safety Report 10509140 (Version 1)
Quarter: 2014Q4

REPORT INFORMATION
  Report Type: Spontaneous
  Country: GB (occurrence: GB)
  Receive Date: 20141009
  Receipt Date: 20141009
  Transmission Date: 20150528
  Serious: Yes (Other)
  Sender: FDA-Public Use
  Company Number: GB-WATSON-2014-21491

PATIENT
  Age: 5 Year
  Sex: Male

DRUGS (1)
  1. OXYBUTYNIN (UNKNOWN) [Suspect]
     Active Substance: OXYBUTYNIN
     Indication: PRODUCT USED FOR UNKNOWN INDICATION
     Dosage: UNK
     Route: 065
     Dates: start: 20140917

REACTIONS (5)
  - Disturbance in attention [Unknown]
  - Aggression [Recovering/Resolving]
  - Middle insomnia [Recovering/Resolving]
  - Eyelid oedema [Recovering/Resolving]
  - Thirst [Recovered/Resolved]

NARRATIVE: CASE EVENT DATE: 20140917
